FAERS Safety Report 23345220 (Version 2)
Quarter: 2024Q1

REPORT INFORMATION
  Report Type: Spontaneous
  Country: JP (occurrence: JP)
  Receive Date: 20231228
  Receipt Date: 20240307
  Transmission Date: 20240409
  Serious: Yes (Other)
  Sender: FDA-Public Use
  Company Number: JP-ASTELLAS-2023JP010583

PATIENT
  Age: 6 Decade
  Sex: Female

DRUGS (4)
  1. XOSPATA [Suspect]
     Active Substance: GILTERITINIB
     Indication: Acute myeloid leukaemia
     Route: 048
     Dates: start: 20230816, end: 20230906
  2. XOSPATA [Suspect]
     Active Substance: GILTERITINIB
     Route: 048
     Dates: start: 20231005
  3. PROGRAF [Concomitant]
     Active Substance: TACROLIMUS
     Indication: Product used for unknown indication
     Dosage: UNK UNK, UNKNOWN FREQ.
     Route: 065
  4. PLATELETS [Concomitant]
     Active Substance: HUMAN PLATELET, ALLOGENIC
     Indication: Platelet count decreased
     Dosage: UNK UNK, UNKNOWN FREQ.
     Route: 042
     Dates: start: 202309, end: 202309

REACTIONS (5)
  - Graft versus host disease in skin [Recovered/Resolved]
  - Renal impairment [Recovered/Resolved]
  - Platelet count decreased [Recovered/Resolved]
  - Hepatic function abnormal [Recovered/Resolved]
  - Hypomagnesaemia [Recovered/Resolved]

NARRATIVE: CASE EVENT DATE: 20230101
